FAERS Safety Report 25632799 (Version 2)
Quarter: 2025Q4

REPORT INFORMATION
  Report Type: Spontaneous
  Country: US (occurrence: US)
  Receive Date: 20250801
  Receipt Date: 20251031
  Transmission Date: 20260118
  Serious: Yes (Other)
  Sender: BLUEPRINT MEDICINES CORPORATION
  Company Number: US-Blueprint Medicines Corporation-2025-AER-01644

PATIENT
  Age: 44 Year
  Sex: Female

DRUGS (3)
  1. AYVAKIT [Suspect]
     Active Substance: AVAPRITINIB
     Indication: Haematopoietic neoplasm
     Route: 065
     Dates: start: 20250724
  2. AYVAKIT [Suspect]
     Active Substance: AVAPRITINIB
     Route: 065
  3. AYVAKIT [Suspect]
     Active Substance: AVAPRITINIB
     Route: 065
     Dates: start: 20250724

REACTIONS (18)
  - Surgery [Unknown]
  - Renal cancer [Unknown]
  - Loss of consciousness [Unknown]
  - Hepatic mass [Unknown]
  - Renal disorder [Unknown]
  - Peripheral venous disease [Unknown]
  - Peripheral swelling [Unknown]
  - Joint swelling [Unknown]
  - Limb discomfort [Unknown]
  - Pain in extremity [Unknown]
  - Hepatomegaly [Unknown]
  - Chest pain [Unknown]
  - Palpitations [Unknown]
  - Hypoaesthesia [Unknown]
  - Spider vein [Unknown]
  - Pain [Unknown]
  - Withdrawal syndrome [Unknown]
  - Product dose omission issue [Unknown]

NARRATIVE: CASE EVENT DATE: 20250101
